FAERS Safety Report 17257963 (Version 2)
Quarter: 2020Q1

REPORT INFORMATION
  Report Type: Spontaneous
  Country: IN (occurrence: IN)
  Receive Date: 20200110
  Receipt Date: 20200114
  Transmission Date: 20200409
  Serious: No
  Sender: FDA-Public Use
  Company Number: IN-PFIZER INC-2020012015

PATIENT
  Age: 47 Year
  Sex: Female

DRUGS (1)
  1. CRIZALK [Suspect]
     Active Substance: CRIZOTINIB
     Indication: NEOPLASM
     Dosage: 250 MG, 2X/DAY
     Route: 048
     Dates: start: 20190929

REACTIONS (1)
  - Thyroid disorder [Unknown]
